FAERS Safety Report 21747705 (Version 1)
Quarter: 2022Q4

REPORT INFORMATION
  Report Type: Report from Study
  Country: US (occurrence: US)
  Receive Date: 20221219
  Receipt Date: 20221219
  Transmission Date: 20230112
  Serious: No
  Sender: FDA-Public Use
  Company Number: US-ABBVIE-4238570

PATIENT
  Sex: Female

DRUGS (1)
  1. SKYRIZI [Suspect]
     Active Substance: RISANKIZUMAB-RZAA
     Indication: Psoriasis
     Dosage: 150 MG PEN SQ WEEK 0 ON 12 OCT 2022, WEEK 4, 09 NOV 2022 EVERY 12 WEEKS?STRENGTH: 150 MILLIGRAM/M...
     Route: 058
     Dates: start: 20221012

REACTIONS (2)
  - Rash macular [Unknown]
  - Skin exfoliation [Unknown]

NARRATIVE: CASE EVENT DATE: 20220101
